FAERS Safety Report 25508275 (Version 1)
Quarter: 2025Q3

REPORT INFORMATION
  Report Type: Spontaneous
  Country: US (occurrence: US)
  Receive Date: 20250703
  Receipt Date: 20250703
  Transmission Date: 20251021
  Serious: No
  Sender: JOHNSON AND JOHNSON
  Company Number: US-JNJFOC-20250701596

PATIENT
  Age: 5 Decade
  Sex: Female

DRUGS (2)
  1. SPRAVATO [Suspect]
     Active Substance: ESKETAMINE
     Indication: Product used for unknown indication
     Route: 045
     Dates: start: 20241010
  2. SPRAVATO [Suspect]
     Active Substance: ESKETAMINE
     Route: 045
     Dates: start: 20241014

REACTIONS (4)
  - Dizziness [Recovered/Resolved]
  - Dissociation [Recovered/Resolved]
  - Taste disorder [Unknown]
  - Drug monitoring procedure incorrectly performed [Unknown]
